FAERS Safety Report 24853354 (Version 1)
Quarter: 2025Q1

REPORT INFORMATION
  Report Type: Spontaneous
  Country: FR (occurrence: FR)
  Receive Date: 20250117
  Receipt Date: 20250117
  Transmission Date: 20250408
  Serious: Yes (Hospitalization, Other)
  Sender: AUROBINDO
  Company Number: FR-AFSSAPS-CF2024000641

PATIENT
  Age: 41 Year
  Sex: Female

DRUGS (3)
  1. LORMETAZEPAM [Suspect]
     Active Substance: LORMETAZEPAM
     Indication: Mixed anxiety and depressive disorder
     Route: 048
     Dates: start: 20241110, end: 20241110
  2. ALPRAZOLAM [Suspect]
     Active Substance: ALPRAZOLAM
     Indication: Mixed anxiety and depressive disorder
     Route: 048
     Dates: start: 20241110, end: 20241110
  3. BRINTELLIX [Suspect]
     Active Substance: VORTIOXETINE HYDROBROMIDE
     Indication: Mixed anxiety and depressive disorder
     Route: 048
     Dates: start: 20241110, end: 20241110

REACTIONS (2)
  - Poisoning deliberate [Recovered/Resolved]
  - Loss of consciousness [Recovered/Resolved]

NARRATIVE: CASE EVENT DATE: 20241110
